FAERS Safety Report 20988666 (Version 1)
Quarter: 2022Q2

REPORT INFORMATION
  Report Type: Spontaneous
  Country: GB (occurrence: GB)
  Receive Date: 20220621
  Receipt Date: 20220621
  Transmission Date: 20220720
  Serious: Yes (Life-Threatening, Hospitalization, Disabling, Other)
  Sender: FDA-Public Use
  Company Number: None

PATIENT
  Age: 44 Year
  Sex: Female
  Weight: 74 kg

DRUGS (3)
  1. TOZINAMERAN [Suspect]
     Active Substance: TOZINAMERAN
     Indication: Immunisation
     Dosage: DOSE 2, SINGLE
     Dates: start: 20210713, end: 20210713
  2. TOZINAMERAN [Suspect]
     Active Substance: TOZINAMERAN
     Dosage: DOSE NUMBER UNKNOWN, SINGLE
     Dates: start: 20220505, end: 20220505
  3. RITUXIMAB [Suspect]
     Active Substance: RITUXIMAB
     Dosage: UNK

REACTIONS (4)
  - Autoimmune disorder [Unknown]
  - Glomerulonephritis membranous [Unknown]
  - Nephropathy [Unknown]
  - Oedema [Unknown]
